FAERS Safety Report 23020421 (Version 4)
Quarter: 2023Q4

REPORT INFORMATION
  Report Type: Spontaneous
  Country: GB (occurrence: GB)
  Receive Date: 20231003
  Receipt Date: 20231207
  Transmission Date: 20240109
  Serious: No
  Sender: FDA-Public Use
  Company Number: GB-PFIZER INC-PV202300152057

PATIENT
  Age: 9 Year
  Sex: Male

DRUGS (1)
  1. GENOTROPIN [Suspect]
     Active Substance: SOMATROPIN
     Dosage: 0.8 MG

REACTIONS (4)
  - Incorrect dose administered by device [Unknown]
  - Injection site discharge [Unknown]
  - Accidental exposure to product [Unknown]
  - Exposure via skin contact [Unknown]
